FAERS Safety Report 21492075 (Version 1)
Quarter: 2022Q4

REPORT INFORMATION
  Report Type: Spontaneous
  Country: US (occurrence: None)
  Receive Date: 20221020
  Receipt Date: 20221020
  Transmission Date: 20230113
  Serious: Yes (Hospitalization)
  Sender: FDA-Public Use
  Company Number: None

PATIENT
  Sex: Female

DRUGS (25)
  1. NUCALA [Suspect]
     Active Substance: MEPOLIZUMAB
     Indication: Product used for unknown indication
     Dosage: 100MG/ML?INJECT 100 MG UNDER THE SKIN (SUBCUTANEOUS INJECTION) EVERY 28 DAYS
     Route: 058
     Dates: start: 20200905
  2. AMLODIPINE TAB [Concomitant]
  3. APAP/CODEINE TAB [Concomitant]
  4. ATORVASTATIN [Concomitant]
     Active Substance: ATORVASTATIN
  5. AZELASTINE SPR [Concomitant]
  6. BRIONIDINE SOL OP [Concomitant]
  7. CITRALOPRAM TAB [Concomitant]
  8. DIAZEPAM TAB [Concomitant]
  9. EUTHYROX TAB [Concomitant]
  10. FENOFIBRATE TAB [Concomitant]
  11. FUROSEMIDE TAB [Concomitant]
  12. INCRUSE ELPT INH [Concomitant]
  13. INDAPAMIDE TAB [Concomitant]
  14. JANUVIA TAB [Concomitant]
  15. LISINOPRIL [Concomitant]
     Active Substance: LISINOPRIL
  16. METFORMIN TAB [Concomitant]
  17. MIRTAZAPINE TAB [Concomitant]
  18. MONTELUKAST SODIUM [Concomitant]
     Active Substance: MONTELUKAST SODIUM
  19. NEO/POLY/DEX SUS [Concomitant]
  20. NYSTATIN [Concomitant]
     Active Substance: NYSTATIN
  21. PANTOPRAZOLE TAB [Concomitant]
  22. PREDNISONE [Concomitant]
     Active Substance: PREDNISONE
  23. ROSUVASTATIN [Concomitant]
     Active Substance: ROSUVASTATIN
  24. SUCRALFATE TAB [Concomitant]
  25. TRIMAINOLON OIN [Concomitant]

REACTIONS (1)
  - Asthma [None]
